FAERS Safety Report 20077848 (Version 1)
Quarter: 2021Q4

REPORT INFORMATION
  Report Type: Spontaneous
  Country: DE (occurrence: DE)
  Receive Date: 20211116
  Receipt Date: 20211116
  Transmission Date: 20220303
  Serious: Yes (Hospitalization)
  Sender: FDA-Public Use
  Company Number: DE-ADRED-07197-02

PATIENT
  Age: 78 Year
  Sex: Female
  Weight: 67 kg

DRUGS (10)
  1. GABAPENTIN [Suspect]
     Active Substance: GABAPENTIN
     Indication: Product used for unknown indication
     Dosage: 300 MILLIGRAM, BID (300 MG, 1-0-1-0)
  2. ROSUVASTATIN [Concomitant]
     Active Substance: ROSUVASTATIN
     Dosage: 10 MILLIGRAM, QD (10 MG, 0-0-1-0)
  3. BISOPROLOL [Concomitant]
     Active Substance: BISOPROLOL
     Dosage: 5 MILLIGRAM, QD (5 MG, 1-0-0-0)
  4. RAMIPRIL [Concomitant]
     Active Substance: RAMIPRIL
     Dosage: 5 MILLIGRAM, QD (5 MG, 1-0-0-0)
  5. PREDNISOLON                        /00016201/ [Concomitant]
     Dosage: 5 MILLIGRAM, QD (5 MG, 1-0-0-0)
  6. INSULIN HUMAN [Concomitant]
     Active Substance: INSULIN HUMAN
     Dosage: UNK, SCHEMA
  7. INSULIN DETEMIR [Concomitant]
     Active Substance: INSULIN DETEMIR
     Dosage: UNK, SCHEMA
  8. AMLODIPIN                          /00972401/ [Concomitant]
     Dosage: 5 MILLIGRAM, QD (5 MG, 1-0-0-0)
  9. TORSEMIDE [Concomitant]
     Active Substance: TORSEMIDE
     Dosage: 10 MILLIGRAM, BID (10 MG, 1-1-0-0)
  10. PANTOPRAZOLE [Concomitant]
     Active Substance: PANTOPRAZOLE
     Dosage: 20 MILLIGRAM, QD (20 MG, 1-0-0-0)

REACTIONS (8)
  - Anaemia [Unknown]
  - Systemic infection [Unknown]
  - Abdominal pain [Unknown]
  - Dyspnoea [Unknown]
  - Vomiting [Unknown]
  - Constipation [Unknown]
  - Renal impairment [Unknown]
  - Oedema peripheral [Unknown]
